FAERS Safety Report 12484581 (Version 1)
Quarter: 2016Q2

REPORT INFORMATION
  Report Type: Spontaneous
  Country: GB (occurrence: GB)
  Receive Date: 20160621
  Receipt Date: 20160621
  Transmission Date: 20160815
  Serious: Yes (Other)
  Sender: FDA-Public Use
  Company Number: GB-PFIZER INC-2016309058

PATIENT

DRUGS (1)
  1. GENOTROPIN [Suspect]
     Active Substance: SOMATROPIN
     Dosage: UNK
     Dates: start: 201410

REACTIONS (5)
  - Proteinuria [Unknown]
  - Back pain [Unknown]
  - Cardiomyopathy [Unknown]
  - Chest pain [Unknown]
  - Pain in extremity [Unknown]
